FAERS Safety Report 7893495-2 (Version None)
Quarter: 2011Q4

REPORT INFORMATION
  Report Type: 
  Country: None (occurrence: None)
  Receive Date: 20111104
  Receipt Date: 20111103
  Transmission Date: 20120403
  Serious: Yes (Other)
  Sender: FDA-Public Use
  Company Number: US-GLAXOSMITHKLINE-A0951183A

PATIENT
  Age: 61 Year
  Sex: Female

DRUGS (2)
  1. MULTIPLE MEDICATIONS [Concomitant]
     Indication: BIPOLAR DISORDER
  2. NICORETTE (MINT) [Suspect]
     Indication: SMOKING CESSATION THERAPY
     Route: 002
     Dates: start: 20110501

REACTIONS (5)
  - DRUG ADMINISTRATION ERROR [None]
  - TREMOR [None]
  - MUSCULOSKELETAL DISORDER [None]
  - DYSGRAPHIA [None]
  - NICOTINE DEPENDENCE [None]
